FAERS Safety Report 19043300 (Version 1)
Quarter: 2021Q1

REPORT INFORMATION
  Report Type: Spontaneous
  Country: CN (occurrence: CN)
  Receive Date: 20210323
  Receipt Date: 20210323
  Transmission Date: 20210420
  Serious: Yes (Life-Threatening, Other)
  Sender: FDA-Public Use
  Company Number: CN-PFIZER INC-2021259534

PATIENT
  Age: 56 Year
  Sex: Male
  Weight: 57 kg

DRUGS (2)
  1. METHYLPREDNISOLONE SODIUM SUCCINATE. [Suspect]
     Active Substance: METHYLPREDNISOLONE SODIUM SUCCINATE
     Indication: CHEMOTHERAPY
     Dosage: 40 MG, 1X/DAY
     Route: 041
     Dates: start: 20210228, end: 20210228
  2. SODIUM CHLORIDE 0.9% [Concomitant]
     Active Substance: SODIUM CHLORIDE
     Indication: VEHICLE SOLUTION USE
     Dosage: 100 ML, 1X/DAY
     Route: 041
     Dates: start: 20210228, end: 20210228

REACTIONS (5)
  - Dizziness [Unknown]
  - Pallor [Unknown]
  - Hypotension [Recovered/Resolved]
  - Blood glucose increased [Unknown]
  - Cold sweat [Unknown]

NARRATIVE: CASE EVENT DATE: 20210228
